FAERS Safety Report 6408468-6 (Version None)
Quarter: 2009Q4

REPORT INFORMATION
  Report Type: 
  Country: None (occurrence: None)
  Receive Date: 20091021
  Receipt Date: 20091013
  Transmission Date: 20100525
  Serious: Yes (Other)
  Sender: FDA-Public Use
  Company Number: GB-JNJFOC-20091004586

PATIENT
  Age: 90 Year
  Sex: Female

DRUGS (1)
  1. REMINYL XR [Suspect]
     Indication: DEMENTIA
     Route: 065

REACTIONS (4)
  - BRADYCARDIA [None]
  - CIRCULATORY COLLAPSE [None]
  - DIARRHOEA [None]
  - VOMITING [None]
